FAERS Safety Report 21060323 (Version 3)
Quarter: 2022Q3

REPORT INFORMATION
  Report Type: Spontaneous
  Country: US (occurrence: US)
  Receive Date: 20220708
  Receipt Date: 20220712
  Transmission Date: 20221027
  Serious: No
  Sender: FDA-Public Use
  Company Number: US-SANOFI-01171086

PATIENT
  Age: 42 Year
  Sex: Female

DRUGS (3)
  1. DUPIXENT [Suspect]
     Active Substance: DUPILUMAB
     Indication: Dermatitis atopic
     Dosage: 600 MG, 1X
     Route: 065
     Dates: start: 20220516, end: 20220516
  2. SKYRIZI [Concomitant]
     Active Substance: RISANKIZUMAB-RZAA
  3. VALTREX [Concomitant]
     Active Substance: VALACYCLOVIR HYDROCHLORIDE
     Indication: Oral herpes

REACTIONS (10)
  - Hordeolum [Not Recovered/Not Resolved]
  - Vision blurred [Not Recovered/Not Resolved]
  - Eye discharge [Unknown]
  - Eye swelling [Unknown]
  - Swelling face [Unknown]
  - Eye disorder [Unknown]
  - Toothache [Recovered/Resolved]
  - Eye pruritus [Unknown]
  - Oral herpes [Not Recovered/Not Resolved]
  - Conjunctivitis [Unknown]

NARRATIVE: CASE EVENT DATE: 20220101
